FAERS Safety Report 4274918-7 (Version None)
Quarter: 2004Q1

REPORT INFORMATION
  Report Type: 
  Country: None (occurrence: None)
  Receive Date: 20040120
  Receipt Date: 20031119
  Transmission Date: 20041129
  Serious: Yes (Life-Threatening, Hospitalization)
  Sender: FDA-Public Use
  Company Number: WAES 0311USA02236

PATIENT
  Age: 80 Year
  Sex: Male
  Weight: 100 kg

DRUGS (9)
  1. ATENOLOL [Concomitant]
     Indication: HYPERTENSION
     Route: 048
  2. LIPITOR [Concomitant]
     Indication: BLOOD CHOLESTEROL INCREASED
     Route: 048
     Dates: end: 20030101
  3. LIPITOR [Concomitant]
  4. FLONASE [Concomitant]
     Indication: HYPERSENSITIVITY
  5. GLUCOSAMINE [Concomitant]
  6. ACCUPRIL [Concomitant]
     Indication: HYPERTENSION
     Route: 047
  7. VIOXX [Suspect]
     Indication: ARTHRALGIA
     Route: 048
     Dates: start: 20030801, end: 20030903
  8. VIOXX [Suspect]
     Route: 048
  9. SAW PALMETTO [Concomitant]

REACTIONS (20)
  - ASTHENIA [None]
  - BALANCE DISORDER [None]
  - BRADYCARDIA [None]
  - CONFUSIONAL STATE [None]
  - DILATATION ATRIAL [None]
  - ENCEPHALOPATHY [None]
  - FEELING ABNORMAL [None]
  - HEADACHE [None]
  - HEART RATE DECREASED [None]
  - HYPERTENSIVE CRISIS [None]
  - HYPERTENSIVE ENCEPHALOPATHY [None]
  - HYPOAESTHESIA [None]
  - HYPOREFLEXIA [None]
  - LOSS OF CONSCIOUSNESS [None]
  - MUSCLE CRAMP [None]
  - MYOSITIS [None]
  - NAUSEA [None]
  - SPEECH DISORDER [None]
  - TREMOR [None]
  - VOMITING [None]
